FAERS Safety Report 17299834 (Version 1)
Quarter: 2020Q1

REPORT INFORMATION
  Report Type: Spontaneous
  Country: US (occurrence: US)
  Receive Date: 20200122
  Receipt Date: 20200122
  Transmission Date: 20200409
  Serious: No
  Sender: FDA-Public Use
  Company Number: US-ALLERGAN-1935265US

PATIENT
  Age: 84 Year
  Sex: Female

DRUGS (1)
  1. RESTASIS [Suspect]
     Active Substance: CYCLOSPORINE
     Indication: PRODUCT USED FOR UNKNOWN INDICATION
     Dosage: UNK, SINGLE
     Route: 047

REACTIONS (5)
  - Eye swelling [Recovered/Resolved]
  - Prescription drug used without a prescription [Unknown]
  - Instillation site pain [Recovered/Resolved]
  - Ocular hyperaemia [Recovered/Resolved]
  - Product storage error [Unknown]
